FAERS Safety Report 5113840-0 (Version None)
Quarter: 2006Q3

REPORT INFORMATION
  Report Type: 
  Country: None (occurrence: None)
  Receive Date: 20060925
  Receipt Date: 20060911
  Transmission Date: 20061208
  Serious: Yes (Hospitalization)
  Sender: FDA-Public Use
  Company Number: GR-ROCHE-462884

PATIENT
  Age: 50 Year
  Sex: Female

DRUGS (1)
  1. BONIVA [Suspect]
     Indication: OSTEOPOROSIS
     Dosage: 150 MG MONTHLY.
     Route: 048
     Dates: start: 20060707

REACTIONS (5)
  - ARTHRALGIA [None]
  - BACK PAIN [None]
  - DISCOMFORT [None]
  - DRUG INEFFECTIVE [None]
  - MYALGIA [None]
